FAERS Safety Report 5469403-0 (Version None)
Quarter: 2007Q3

REPORT INFORMATION
  Report Type: 
  Country: None (occurrence: None)
  Receive Date: 20070924
  Receipt Date: 20070911
  Transmission Date: 20080115
  Serious: Yes (Hospitalization)
  Sender: FDA-Public Use
  Company Number: 161436ISR

PATIENT
  Age: 19 Year
  Sex: Female

DRUGS (1)
  1. PROPRANOLOL [Suspect]
     Indication: MIGRAINE
     Dosage: (80 MG)
     Route: 048
     Dates: start: 20070821, end: 20070821

REACTIONS (3)
  - DYSARTHRIA [None]
  - FACIAL PARESIS [None]
  - MUSCULAR WEAKNESS [None]
